FAERS Safety Report 6655220-2 (Version None)
Quarter: 2010Q1

REPORT INFORMATION
  Report Type: 
  Country: None (occurrence: None)
  Receive Date: 20100324
  Receipt Date: 20100316
  Transmission Date: 20100710
  Serious: Yes (Death)
  Sender: FDA-Public Use
  Company Number: SPV1-2010-00488

PATIENT
  Age: 14 Year
  Sex: Male

DRUGS (1)
  1. ADDERALL XR 10 [Suspect]
     Indication: DRUG USE FOR UNKNOWN INDICATION
     Dosage: 20 MG
     Dates: start: 20040101, end: 20070101

REACTIONS (4)
  - CARBON MONOXIDE POISONING [None]
  - DECREASED APPETITE [None]
  - FATIGUE [None]
  - MOOD SWINGS [None]
